FAERS Safety Report 5031050-2 (Version None)
Quarter: 2006Q2

REPORT INFORMATION
  Report Type: 
  Country: None (occurrence: None)
  Receive Date: 20060619
  Receipt Date: 20060619
  Transmission Date: 20061013
  Serious: Yes (Hospitalization)
  Sender: FDA-Public Use
  Company Number: None

PATIENT
  Age: 59 Year
  Sex: Female

DRUGS (5)
  1. CYTOXAN [Suspect]
     Indication: NON-HODGKIN'S LYMPHOMA
     Dosage: 750 MG/M2 IV
     Route: 042
     Dates: start: 20060607
  2. ADRIAMYCIN PFS [Suspect]
     Indication: NON-HODGKIN'S LYMPHOMA
     Dosage: 50 MG/M2 IV
     Route: 042
     Dates: start: 20060607
  3. VINCRISTINE [Suspect]
     Indication: NON-HODGKIN'S LYMPHOMA
     Dosage: 1.4 MG/M2 IV
     Route: 042
     Dates: start: 20060607
  4. PREDNISONE TAB [Suspect]
     Indication: NON-HODGKIN'S LYMPHOMA
     Dosage: 100MG PO QD X 5D
     Route: 048
     Dates: start: 20060607, end: 20060611
  5. NEULASTA [Concomitant]

REACTIONS (7)
  - ASTHENIA [None]
  - BODY TEMPERATURE INCREASED [None]
  - DEHYDRATION [None]
  - DIZZINESS [None]
  - HYPOTENSION [None]
  - TACHYPNOEA [None]
  - VOMITING [None]
